FAERS Safety Report 13909413 (Version 1)
Quarter: 2017Q3

REPORT INFORMATION
  Report Type: Spontaneous
  Country: ZA (occurrence: ZA)
  Receive Date: 20170828
  Receipt Date: 20170828
  Transmission Date: 20171127
  Serious: Yes (Other)
  Sender: FDA-Public Use
  Company Number: ZA-LUPIN PHARMACEUTICALS INC.-2017-04827

PATIENT
  Sex: Male

DRUGS (1)
  1. CARVETREND [Suspect]
     Active Substance: CARVEDILOL
     Indication: HYPERTENSION
     Dosage: UNK
     Route: 048
     Dates: start: 201706

REACTIONS (3)
  - Visual impairment [Unknown]
  - Photopsia [Unknown]
  - Retinal detachment [Unknown]

NARRATIVE: CASE EVENT DATE: 201706
